FAERS Safety Report 6392401-X (Version None)
Quarter: 2009Q4

REPORT INFORMATION
  Report Type: 
  Country: None (occurrence: None)
  Receive Date: 20091005
  Receipt Date: 20090922
  Transmission Date: 20100525
  Serious: Yes (Death)
  Sender: FDA-Public Use
  Company Number: B0595693A

PATIENT
  Sex: 0

DRUGS (4)
  1. BUSULPHAN             (FORMULATION UNKNOWN) (GENERIC) (BUSULFAN) [Suspect]
  2. THIOTEPA [Suspect]
  3. STEM CELL TRANSPLANT [Concomitant]
  4. RADIOTHERAPY [Concomitant]

REACTIONS (2)
  - CENTRAL NERVOUS SYSTEM NECROSIS [None]
  - DRUG TOXICITY [None]
